FAERS Safety Report 15688335 (Version 2)
Quarter: 2018Q4

REPORT INFORMATION
  Report Type: Spontaneous
  Country: US (occurrence: US)
  Receive Date: 20181205
  Receipt Date: 20181214
  Transmission Date: 20190205
  Serious: Yes (Other)
  Sender: FDA-Public Use
  Company Number: US-HORIZON-ACT-0361-2018

PATIENT
  Age: 11 Year
  Sex: Male

DRUGS (5)
  1. SPORANOX [Concomitant]
     Active Substance: ITRACONAZOLE
  2. ACTIMMUNE [Suspect]
     Active Substance: INTERFERON GAMMA-1B
     Indication: CHRONIC GRANULOMATOUS DISEASE
     Dosage: 0.2 ML (0.2 MG) TIW
     Dates: start: 20130503
  3. SULFAMETHOX POW [Concomitant]
  4. CEFAZOLIN [Concomitant]
     Active Substance: CEFAZOLIN
  5. SMZ-TMP [Concomitant]
     Active Substance: SULFAMETHOXAZOLE\TRIMETHOPRIM

REACTIONS (1)
  - Liver abscess [Not Recovered/Not Resolved]

NARRATIVE: CASE EVENT DATE: 201811
